FAERS Safety Report 6685256-7 (Version None)
Quarter: 2010Q2

REPORT INFORMATION
  Report Type: 
  Country: None (occurrence: None)
  Receive Date: 20100416
  Receipt Date: 20100408
  Transmission Date: 20101027
  Serious: Yes (Hospitalization)
  Sender: FDA-Public Use
  Company Number: JP-ABBOTT-10P-087-0627368-00

PATIENT
  Sex: Female

DRUGS (13)
  1. HUMIRA [Suspect]
     Indication: RHEUMATOID ARTHRITIS
     Route: 058
     Dates: start: 20090911, end: 20100129
  2. METHOTREXATE [Concomitant]
     Indication: RHEUMATOID ARTHRITIS
     Route: 048
     Dates: start: 20090912, end: 20091106
  3. METHOTREXATE [Concomitant]
     Dates: start: 20091107, end: 20100212
  4. MUCOSTA [Concomitant]
     Indication: GASTRITIS
     Route: 048
     Dates: start: 20090519
  5. TAKEPRON [Concomitant]
     Indication: GASTRITIS
     Route: 048
     Dates: start: 20090622
  6. RIZE [Concomitant]
     Indication: INSOMNIA
     Route: 048
     Dates: start: 20090707
  7. AMLODIPINE [Concomitant]
     Indication: HYPERTENSION
     Route: 048
     Dates: start: 20030901
  8. KETOPROFEN [Concomitant]
     Indication: RHEUMATOID ARTHRITIS
     Dates: start: 20100109
  9. FOLIC ACID [Concomitant]
     Indication: ADVERSE DRUG REACTION
     Route: 048
     Dates: start: 20090914, end: 20100214
  10. FOLIC ACID [Concomitant]
     Indication: PROPHYLAXIS
  11. PREDNISOLONE [Concomitant]
     Indication: RHEUMATOID ARTHRITIS
     Route: 048
     Dates: start: 20090721
  12. PREDNISOLONE [Concomitant]
  13. HYALEIN [Concomitant]
     Indication: DRY EYE
     Dosage: EACH EYE
     Dates: start: 20071113

REACTIONS (2)
  - ENTERITIS INFECTIOUS [None]
  - PLEURISY [None]
